FAERS Safety Report 8190889-5 (Version None)
Quarter: 2012Q1

REPORT INFORMATION
  Report Type: 
  Country: None (occurrence: None)
  Receive Date: 20120221
  Receipt Date: 20111122
  Transmission Date: 20120608
  Serious: No
  Sender: FDA-Public Use
  Company Number: 1000025716

PATIENT
  Age: 34 Year
  Sex: Female

DRUGS (11)
  1. VIIBRYD [Suspect]
     Indication: BIPOLAR DISORDER
     Dosage: 10 MG (10 MG, 1 IN 1 D), ORAL, 20 MG (20 MG, 1 IN 1 D), ORAL, 30 MG (30 MG, 1 IN 1 D), ORAL
     Route: 048
     Dates: start: 20111122
  2. VIIBRYD [Suspect]
     Indication: BIPOLAR DISORDER
     Dosage: 10 MG (10 MG, 1 IN 1 D), ORAL, 20 MG (20 MG, 1 IN 1 D), ORAL, 30 MG (30 MG, 1 IN 1 D), ORAL
     Route: 048
     Dates: start: 20111115, end: 20111121
  3. VIIBRYD [Suspect]
     Indication: BIPOLAR DISORDER
     Dosage: 10 MG (10 MG, 1 IN 1 D), ORAL, 20 MG (20 MG, 1 IN 1 D), ORAL, 30 MG (30 MG, 1 IN 1 D), ORAL
     Route: 048
     Dates: start: 20111108, end: 20111114
  4. LAMICTAL [Concomitant]
  5. METHYLPHENIDATE (METHYLPHENIDATE) (METHYLPHENIDATE) [Concomitant]
  6. BOTOX (BOTULINUM TOXIN TYPE A) (BOTULINUM TOXIN TYPE A) [Concomitant]
  7. MINOCYCLINE (MINOCYCLINE) (MINOCYCLINE) [Concomitant]
  8. ABILIFY (ARIPIPRAZOLE) (ARIPIPRAZOLE) [Concomitant]
  9. MIGRANAL (DIPHYDROERGOTAMINE MESILATE) (DIHYDROERGOTAMINE MESILATE) [Concomitant]
  10. ZANAFLEX (TIZANIDINE HYDROCHLORIDE) (TIZANIDINE HYDROCHLORIDE) [Concomitant]
  11. TORADOL (KETOPROLAC TROMETHAMINE) (KETOROLAC TROMETHAMINE) [Concomitant]

REACTIONS (2)
  - OFF LABEL USE [None]
  - METRORRHAGIA [None]
